FAERS Safety Report 13991815 (Version 2)
Quarter: 2017Q4

REPORT INFORMATION
  Report Type: Spontaneous
  Country: US (occurrence: US)
  Receive Date: 20170920
  Receipt Date: 20171123
  Transmission Date: 20180321
  Serious: No
  Sender: FDA-Public Use
  Company Number: US-JNJFOC-20170910200

PATIENT
  Age: 67 Year
  Sex: Male

DRUGS (6)
  1. BUPROPION. [Concomitant]
     Active Substance: BUPROPION
     Dosage: SUSTAINED RELEASE
     Route: 048
     Dates: start: 20170822
  2. RISPERDAL CONSTA [Suspect]
     Active Substance: RISPERIDONE
     Indication: SCHIZOAFFECTIVE DISORDER
     Route: 030
  3. CLOZAPINE. [Concomitant]
     Active Substance: CLOZAPINE
     Route: 048
     Dates: start: 20170822
  4. CLOZAPINE. [Concomitant]
     Active Substance: CLOZAPINE
     Dosage: FRAZACLO (ORALLY DISINTEGRATING TABLET)
     Route: 048
     Dates: start: 20170822
  5. SERTRALINE [Concomitant]
     Active Substance: SERTRALINE HYDROCHLORIDE
     Dosage: EVERY MORNING
     Route: 048
     Dates: start: 20170822
  6. RISPERDAL CONSTA [Suspect]
     Active Substance: RISPERIDONE
     Indication: SCHIZOAFFECTIVE DISORDER
     Route: 030
     Dates: start: 20170822

REACTIONS (4)
  - Procedural complication [Unknown]
  - Wrong technique in product usage process [Unknown]
  - Incorrect dose administered [Unknown]
  - Off label use [Unknown]

NARRATIVE: CASE EVENT DATE: 20170911
